FAERS Safety Report 8736880 (Version 2)
Quarter: 2012Q4

REPORT INFORMATION
  Report Type: Spontaneous
  Country: GB (occurrence: None)
  Receive Date: 20120806
  Receipt Date: 20120907
  Transmission Date: 20130627
  Serious: Yes (Hospitalization, Other)
  Sender: FDA-Public Use
  Company Number: GER/UKI/12/0025256

PATIENT
  Age: 83 Year
  Sex: Male

DRUGS (9)
  1. DONEPEZIL HYDROCHLORIDE [Suspect]
     Indication: DEMENTIA ALZHEIMER^S TYPE
     Dosage: 10 MG, ORAL
     Route: 048
     Dates: start: 20120713, end: 20120713
  2. DONEPEZIL HYDROCHLORIDE [Suspect]
     Indication: VASCULAR DEMENTIA
     Dosage: 10 MG, ORAL
     Route: 048
     Dates: start: 20120713, end: 20120713
  3. DONEPEZIL HYDROCHLORIDE [Suspect]
     Indication: DEMENTIA ALZHEIMER^S TYPE
     Route: 048
  4. DONEPEZIL HYDROCHLORIDE [Suspect]
     Indication: VASCULAR DEMENTIA
     Route: 048
  5. PRAVASTATIN [Concomitant]
  6. QUININE SULFATE [Concomitant]
  7. AMLODIPINE [Concomitant]
  8. ASPIRIN [Concomitant]
  9. CANDESARTAN CILEXETIL [Concomitant]

REACTIONS (4)
  - Bradycardia [None]
  - Diarrhoea [None]
  - Syncope [None]
  - Fall [None]
